FAERS Safety Report 14615503 (Version 1)
Quarter: 2018Q1

REPORT INFORMATION
  Report Type: Spontaneous
  Country: GB (occurrence: GB)
  Receive Date: 20180308
  Receipt Date: 20180308
  Transmission Date: 20180509
  Serious: Yes (Hospitalization)
  Sender: FDA-Public Use
  Company Number: GB-009507513-1803GBR002277

PATIENT
  Age: 76 Year
  Sex: Female

DRUGS (8)
  1. LEVOTHYROXINE SODIUM. [Concomitant]
     Active Substance: LEVOTHYROXINE SODIUM
     Indication: PRODUCT USED FOR UNKNOWN INDICATION
     Dosage: 100 MG, QD
     Route: 065
  2. EBIXA [Suspect]
     Active Substance: MEMANTINE HYDROCHLORIDE
     Dosage: 10 ML, QD
     Route: 048
  3. SIMVASTATIN. [Suspect]
     Active Substance: SIMVASTATIN
     Indication: PRODUCT USED FOR UNKNOWN INDICATION
     Dosage: AT NIGHT
     Route: 065
  4. EBIXA [Suspect]
     Active Substance: MEMANTINE HYDROCHLORIDE
     Indication: DEMENTIA
     Dosage: 7.5 ML, QD
     Route: 048
  5. EBIXA [Suspect]
     Active Substance: MEMANTINE HYDROCHLORIDE
     Dosage: 5 ML, QD
     Route: 048
  6. EBIXA [Suspect]
     Active Substance: MEMANTINE HYDROCHLORIDE
     Dosage: 2.5 ML, QD
     Route: 048
     Dates: start: 20170706
  7. FLUOXETINE [Concomitant]
     Active Substance: FLUOXETINE HYDROCHLORIDE
     Indication: PRODUCT USED FOR UNKNOWN INDICATION
     Dosage: 5ML
     Route: 065
  8. ZOPICLONE [Concomitant]
     Active Substance: ZOPICLONE
     Indication: PRODUCT USED FOR UNKNOWN INDICATION
     Dosage: AT NIGHT
     Route: 065

REACTIONS (4)
  - Diarrhoea [Unknown]
  - Drug dispensing error [Unknown]
  - Fatigue [Unknown]
  - Accidental overdose [Unknown]

NARRATIVE: CASE EVENT DATE: 20170706
